FAERS Safety Report 6613972-1 (Version None)
Quarter: 2010Q1

REPORT INFORMATION
  Report Type: 
  Country: None (occurrence: None)
  Receive Date: 20100225
  Receipt Date: 20100211
  Transmission Date: 20100710
  Serious: Yes (Other)
  Sender: FDA-Public Use
  Company Number: IDA-00332

PATIENT
  Age: 36 Year
  Sex: Male

DRUGS (2)
  1. PROPRANOLOL [Suspect]
     Dosage: 80 MG DAILY ORAL
     Route: 048
     Dates: start: 20091102, end: 20091130
  2. (ESCITALOPRAM) [Suspect]
     Indication: DEPRESSION
     Dosage: 10 MG DAILY / 20 MG DAILY ORAL / ORAL
     Route: 048
     Dates: start: 20091116

REACTIONS (5)
  - CONDITION AGGRAVATED [None]
  - DEPRESSION [None]
  - HALLUCINATION, AUDITORY [None]
  - PSYCHOTIC DISORDER [None]
  - SUICIDAL IDEATION [None]
